FAERS Safety Report 20851907 (Version 2)
Quarter: 2022Q2

REPORT INFORMATION
  Report Type: Spontaneous
  Country: GB (occurrence: GB)
  Receive Date: 20220520
  Receipt Date: 20220603
  Transmission Date: 20220721
  Serious: Yes (Death, Life-Threatening, Hospitalization, Disabling, Other)
  Sender: FDA-Public Use
  Company Number: GB-VELOXIS PHARMACEUTICALS-2022VELGB-000327

PATIENT
  Age: 27 Year
  Sex: Female

DRUGS (2)
  1. TACROLIMUS [Suspect]
     Active Substance: TACROLIMUS
     Indication: Kidney transplant rejection
     Dosage: UNK
  2. OMEPRAZOLE [Suspect]
     Active Substance: OMEPRAZOLE
     Indication: Renal failure
     Dosage: UNK

REACTIONS (7)
  - Circulatory collapse [Fatal]
  - Brain oedema [Fatal]
  - Acidosis [Fatal]
  - Blood magnesium decreased [Fatal]
  - Blood calcium decreased [Fatal]
  - Renal impairment [Fatal]
  - Drug interaction [Fatal]

NARRATIVE: CASE EVENT DATE: 20161001
